FAERS Safety Report 25368576 (Version 3)
Quarter: 2025Q3

REPORT INFORMATION
  Report Type: Spontaneous
  Country: JP (occurrence: JP)
  Receive Date: 20250528
  Receipt Date: 20250724
  Transmission Date: 20251021
  Serious: Yes (Death, Hospitalization, Other)
  Sender: PFIZER
  Company Number: JP-PFIZER INC-202500106313

PATIENT
  Age: 77 Year
  Sex: Female
  Weight: 40 kg

DRUGS (15)
  1. RHEUMATREX [Suspect]
     Active Substance: METHOTREXATE SODIUM
     Indication: Rheumatoid arthritis
     Dosage: 2 DF, WEEKLY (4 MG ONCE EVERY THURSDAY) AFTER BREAKFAST
     Route: 048
     Dates: end: 20240916
  2. SPIRONOLACTONE [Concomitant]
     Active Substance: SPIRONOLACTONE
     Dosage: 1 DF, 1X/DAY AFTER BREAKFAST, IN ONE-DOSE PACKAGE, ^TOWA^
  3. ENALAPRIL MALEATE [Concomitant]
     Active Substance: ENALAPRIL MALEATE
     Dosage: 0.5 DF, 1X/DAY AFTER BREAKFAST, IN ONE-DOSE PACKAGE, ^OHARA^
  4. ASPIRIN [Concomitant]
     Active Substance: ASPIRIN
     Dosage: 1 DF, 1X/DAY AFTER BREAKFAST, IN ONE-DOSE PACKAGE
  5. VONOPRAZAN FUMARATE [Concomitant]
     Active Substance: VONOPRAZAN FUMARATE
     Dosage: 1 DF, 1X/DAY AFTER BREAKFAST, IN ONE-DOSE PACKAGE
  6. ROSUVASTATIN CALCIUM [Concomitant]
     Active Substance: ROSUVASTATIN CALCIUM
     Dosage: 1 DF, 1X/DAY AFTER BREAKFAST, IN ONE-DOSE PACKAGE, ^SAWAI^
  7. BISOPROLOL FUMARATE [Concomitant]
     Active Substance: BISOPROLOL FUMARATE
     Dosage: 0.5 DF, 1X/DAY AFTER BREAKFAST, IN ONE-DOSE PACKAGE, ^TOWA^
  8. FOLIC ACID [Concomitant]
     Active Substance: FOLIC ACID
     Dosage: 1 DF, WEEKLY (ONCE EVERY SATURDAY) AFTER BREAKFAST
  9. PREGABALIN [Concomitant]
     Active Substance: PREGABALIN
     Dosage: 2 DF, 2X/DAY AFTER BREAKFAST AND BEFORE SLEEP
  10. ETIZOLAM [Concomitant]
     Active Substance: ETIZOLAM
     Dosage: 1 DF, 1X/DAY BEFORE SLEEP
  11. FERROUS SULFATE [Concomitant]
     Active Substance: FERROUS SULFATE
     Dosage: 1 DF, 1X/DAY AFTER DINNER
  12. CELECOXIB [Concomitant]
     Active Substance: CELECOXIB
     Dosage: 2 DF, 2X/DAY AFTER BREAKFAST AND DINNER, ^CHEMIPHAR^
  13. CALCIUM CARBONATE\CHOLECALCIFEROL\MAGNESIUM CARBONATE [Concomitant]
     Active Substance: CALCIUM CARBONATE\CHOLECALCIFEROL\MAGNESIUM CARBONATE
     Dosage: 1 DF, 1X/DAY AFTER BREAKFAST
  14. PREDNISOLONE [Concomitant]
     Active Substance: PREDNISOLONE
     Dosage: 0.5 DF, 1X/DAY AFTER BREAKFAST, ^TAKEDA^
  15. CALONAL [Concomitant]
     Active Substance: ACETAMINOPHEN
     Indication: Pain

REACTIONS (4)
  - Myelosuppression [Fatal]
  - Sepsis [Fatal]
  - Bacteraemia [Unknown]
  - Dehydration [Not Recovered/Not Resolved]

NARRATIVE: CASE EVENT DATE: 20240916
